FAERS Safety Report 6282206-2 (Version None)
Quarter: 2009Q3

REPORT INFORMATION
  Report Type: 
  Country: None (occurrence: None)
  Receive Date: 20090724
  Receipt Date: 20090717
  Transmission Date: 20100115
  Serious: Yes (Death, Hospitalization)
  Sender: FDA-Public Use
  Company Number: BE-PFIZER INC-2009223222

PATIENT
  Age: 78 Year

DRUGS (6)
  1. SUNITINIB MALATE [Suspect]
     Indication: RENAL CELL CARCINOMA
     Dosage: 25 MG, 1X/DAY
     Route: 048
     Dates: start: 20090408, end: 20090518
  2. PANTOPRAZOLE SODIUM [Concomitant]
     Indication: OESOPHAGITIS
     Dosage: 40 MG, 2X/DAY
     Route: 048
     Dates: start: 20090401
  3. TENORMIN [Concomitant]
     Indication: TACHYCARDIA
     Dosage: UNK
     Route: 048
     Dates: start: 20090401
  4. DAFALGAN [Concomitant]
     Dosage: UNK
     Route: 048
     Dates: start: 20090401
  5. BEFACT FORTE [Concomitant]
  6. PRIMPERAN [Concomitant]

REACTIONS (2)
  - DYSPNOEA [None]
  - PLEURAL EFFUSION [None]
